FAERS Safety Report 12230762 (Version 2)
Quarter: 2016Q3

REPORT INFORMATION
  Report Type: Spontaneous
  Country: US (occurrence: US)
  Receive Date: 20160401
  Receipt Date: 20160912
  Transmission Date: 20161109
  Serious: Yes (Other)
  Sender: FDA-Public Use
  Company Number: US-JNJFOC-20160301301

PATIENT
  Age: 53 Year
  Sex: Female

DRUGS (1)
  1. XARELTO [Suspect]
     Active Substance: RIVAROXABAN
     Indication: SICKLE CELL ANAEMIA
     Dosage: 10-20 MG APPROXIMATELY,??EXACT DOSAGE UNKNOWN
     Route: 048
     Dates: start: 20140101, end: 201509

REACTIONS (4)
  - Off label use [Unknown]
  - Product use issue [Unknown]
  - Postmenopausal haemorrhage [Recovering/Resolving]
  - Internal haemorrhage [Unknown]

NARRATIVE: CASE EVENT DATE: 20120721
